FAERS Safety Report 4604936-8 (Version None)
Quarter: 2005Q1

REPORT INFORMATION
  Report Type: 
  Country: None (occurrence: None)
  Receive Date: 20050309
  Receipt Date: 20050309
  Transmission Date: 20050727
  Serious: Yes (Disabling)
  Sender: FDA-Public Use
  Company Number: None

PATIENT
  Sex: Female
  Weight: 54.4316 kg

DRUGS (2)
  1. KETEK [Suspect]
     Indication: SINUSITIS BACTERIAL
     Dosage: 1 PILL   DAY   ORAL
     Route: 048
     Dates: start: 20041221, end: 20041222
  2. LEVAQUIN [Concomitant]

REACTIONS (10)
  - DIPLOPIA [None]
  - DISTURBANCE IN ATTENTION [None]
  - DIZZINESS [None]
  - FEELING ABNORMAL [None]
  - FLUSHING [None]
  - HEADACHE [None]
  - IMPAIRED WORK ABILITY [None]
  - INSOMNIA [None]
  - VISION BLURRED [None]
  - VISUAL DISTURBANCE [None]
